FAERS Safety Report 5685042-0 (Version None)
Quarter: 2008Q1

REPORT INFORMATION
  Report Type: 
  Country: None (occurrence: None)
  Receive Date: 20080328
  Receipt Date: 19980819
  Transmission Date: 20080703
  Serious: Yes (Death, Life-Threatening, Other)
  Sender: FDA-Public Use
  Company Number: JP-ROCHE-104738

PATIENT
  Age: 74 Year
  Sex: Male

DRUGS (5)
  1. DENOSINE IV [Suspect]
     Indication: PNEUMONIA CYTOMEGALOVIRAL
     Route: 042
     Dates: start: 19971126, end: 19971207
  2. MODACIN [Concomitant]
     Route: 042
     Dates: start: 19971121, end: 19971126
  3. MODACIN [Concomitant]
     Route: 042
     Dates: start: 19971128, end: 19971129
  4. CARBENIN [Concomitant]
     Route: 042
     Dates: start: 19971127, end: 19971127
  5. CARBENIN [Concomitant]
     Route: 042
     Dates: start: 19971129, end: 19971210

REACTIONS (4)
  - DEATH [None]
  - LEUKOPENIA [None]
  - RED BLOOD CELL COUNT DECREASED [None]
  - THROMBOCYTOPENIA [None]
